FAERS Safety Report 10039268 (Version 3)
Quarter: 2014Q2

REPORT INFORMATION
  Report Type: Spontaneous
  Country: US (occurrence: US)
  Receive Date: 20140326
  Receipt Date: 20140415
  Transmission Date: 20141212
  Serious: Yes (Hospitalization, Other)
  Sender: FDA-Public Use
  Company Number: US-PURDUE-USA-2014-0112330

PATIENT
  Age: 56 Year
  Sex: Female

DRUGS (1)
  1. OXYCONTIN (NDA 22-272) [Suspect]
     Indication: LUNG NEOPLASM MALIGNANT
     Dosage: 30 MG, TID
     Route: 048
     Dates: start: 2010

REACTIONS (5)
  - Pneumonia [Not Recovered/Not Resolved]
  - Hallucination [Recovered/Resolved]
  - Vein disorder [Not Recovered/Not Resolved]
  - Sepsis [Recovered/Resolved]
  - Thrombosis [Recovered/Resolved]
